FAERS Safety Report 5080753-2 (Version None)
Quarter: 2006Q3

REPORT INFORMATION
  Report Type: 
  Country: None (occurrence: None)
  Receive Date: 20060809
  Receipt Date: 20060727
  Transmission Date: 20061208
  Serious: Yes (Other)
  Sender: FDA-Public Use
  Company Number: 2006092542

PATIENT
  Age: 37 Year
  Sex: Male

DRUGS (1)
  1. SILDENAFIL (PAH) (SILDENAFIL) [Suspect]
     Indication: PULMONARY HYPERTENSION
     Dosage: (50 MG, UNKNOWN), ORAL
     Route: 048
     Dates: start: 20040101

REACTIONS (3)
  - CONDITION AGGRAVATED [None]
  - HEPATIC CIRRHOSIS [None]
  - PORTAL HYPERTENSION [None]
